FAERS Safety Report 6872287-7 (Version None)
Quarter: 2010Q3

REPORT INFORMATION
  Report Type: 
  Country: None (occurrence: None)
  Receive Date: 20100723
  Receipt Date: 20100712
  Transmission Date: 20110219
  Serious: Yes (Hospitalization, Other)
  Sender: FDA-Public Use
  Company Number: FR-GENENTECH-250753

PATIENT
  Age: 25 Year
  Sex: Female

DRUGS (7)
  1. SOMATROPIN [Suspect]
     Indication: GROWTH HORMONE DEFICIENCY
     Dosage: 0.2 U, QD
     Route: 058
     Dates: start: 20060418
  2. ESTRADIOL [Concomitant]
     Indication: OVARIAN FAILURE
     Dosage: UNK, UNK
     Route: 048
  3. PROGESTERONE [Concomitant]
     Indication: OVARIAN FAILURE
     Dosage: UNK, UNK
     Route: 048
  4. LEVOTHYROXINE SODIUM [Concomitant]
     Indication: HYPOTHYROIDISM
     Dosage: 150 A?G, UNK
     Route: 048
  5. CALCIUM D3 [Concomitant]
     Indication: HYPOPARATHYROIDISM
     Dosage: UNK, UNK
     Route: 048
  6. ALLOPURINOL [Concomitant]
     Indication: PRODUCT USED FOR UNKNOWN INDICATION
  7. CORTICOTHERAPY [Concomitant]
     Indication: PRODUCT USED FOR UNKNOWN INDICATION

REACTIONS (1)
  - CARDIAC FAILURE [None]
